FAERS Safety Report 24167908 (Version 1)
Quarter: 2024Q3

REPORT INFORMATION
  Report Type: Spontaneous
  Country: US (occurrence: None)
  Receive Date: 20240801
  Receipt Date: 20240801
  Transmission Date: 20241017
  Serious: No
  Sender: Public
  Company Number: None

PATIENT
  Age: 45 Year
  Sex: Male

DRUGS (1)
  1. XDEMVY [Suspect]
     Active Substance: LOTILANER
     Dosage: OTHER QUANTITY : 1 DROP IN BOTH EYES;?FREQUENCY : TWICE A DAY;?
     Route: 047
     Dates: start: 20240719, end: 20240721

REACTIONS (1)
  - Burning sensation [None]

NARRATIVE: CASE EVENT DATE: 20240721
